FAERS Safety Report 21478164 (Version 3)
Quarter: 2022Q4

REPORT INFORMATION
  Report Type: Report from Study
  Country: US (occurrence: US)
  Receive Date: 20221019
  Receipt Date: 20221229
  Transmission Date: 20230112
  Serious: Yes (Hospitalization)
  Sender: FDA-Public Use
  Company Number: US-NOVARTISPH-NVSC2022US234973

PATIENT
  Sex: Male
  Weight: 14 kg

DRUGS (3)
  1. ILARIS [Suspect]
     Active Substance: CANAKINUMAB
     Indication: Still^s disease
     Dosage: 60 MG, QMO
     Route: 058
     Dates: start: 20220722
  2. ILARIS [Suspect]
     Active Substance: CANAKINUMAB
     Dosage: 40 MG, QMO
     Route: 058
     Dates: start: 20220816, end: 20220819
  3. ILARIS [Suspect]
     Active Substance: CANAKINUMAB
     Dosage: 80 MG, QMO
     Route: 058

REACTIONS (1)
  - Condition aggravated [Recovering/Resolving]
